FAERS Safety Report 17139362 (Version 1)
Quarter: 2019Q4

REPORT INFORMATION
  Report Type: Spontaneous
  Country: SE (occurrence: SE)
  Receive Date: 20191211
  Receipt Date: 20191211
  Transmission Date: 20200122
  Serious: Yes (Hospitalization)
  Sender: FDA-Public Use
  Company Number: SE-TEVA-2019-SE-1148909

PATIENT
  Age: 31 Year
  Sex: Female

DRUGS (4)
  1. ALVEDON [Suspect]
     Active Substance: ACETAMINOPHEN
     Dosage: 6650 MG
     Route: 048
     Dates: start: 20180819, end: 20180819
  2. OXASCAND [Suspect]
     Active Substance: OXAZEPAM
     Dosage: 100 MG
     Route: 048
     Dates: start: 20180819, end: 20180819
  3. CITODON [Suspect]
     Active Substance: ACETAMINOPHEN\CODEINE PHOSPHATE
     Dosage: 10 ST
     Route: 048
     Dates: start: 20180819, end: 20180819
  4. LERGIGAN [PROMETHAZINE HYDROCHLORIDE] [Suspect]
     Active Substance: PROMETHAZINE HYDROCHLORIDE
     Dosage: 650 MG
     Route: 048
     Dates: start: 20180819, end: 20180819

REACTIONS (6)
  - Somnolence [Unknown]
  - Intentional overdose [Unknown]
  - Intentional self-injury [Unknown]
  - Tachycardia [Unknown]
  - Akathisia [Unknown]
  - Vomiting [Unknown]

NARRATIVE: CASE EVENT DATE: 20180819
